FAERS Safety Report 12724471 (Version 1)
Quarter: 2016Q3

REPORT INFORMATION
  Report Type: Spontaneous
  Country: US (occurrence: US)
  Receive Date: 20160906
  Receipt Date: 20160906
  Transmission Date: 20161109
  Serious: Yes (Congenital Anomaly)
  Sender: FDA-Public Use
  Company Number: None

PATIENT
  Age: 35 Year
  Sex: Female
  Weight: 63 kg

DRUGS (1)
  1. CHANTIX [Suspect]
     Active Substance: VARENICLINE TARTRATE
     Dosage: STARTER PACK
     Dates: start: 20160731, end: 20160827

REACTIONS (2)
  - Abortion spontaneous [None]
  - Maternal drugs affecting foetus [None]

NARRATIVE: CASE EVENT DATE: 20160830
